FAERS Safety Report 12802118 (Version 1)
Quarter: 2016Q4

REPORT INFORMATION
  Report Type: Spontaneous
  Country: US (occurrence: US)
  Receive Date: 20161003
  Receipt Date: 20161003
  Transmission Date: 20170207
  Serious: No
  Sender: FDA-Public Use
  Company Number: US-JAZZ-2016-US-012152

PATIENT
  Sex: Male

DRUGS (14)
  1. AMLODIPINE BESYLATE. [Concomitant]
     Active Substance: AMLODIPINE BESYLATE
  2. CHLORTHALIDONE. [Concomitant]
     Active Substance: CHLORTHALIDONE
  3. METAMUCIL [Concomitant]
     Active Substance: PLANTAGO SEED
  4. PROAIR HFA [Concomitant]
     Active Substance: ALBUTEROL SULFATE
  5. COLCHICINE. [Concomitant]
     Active Substance: COLCHICINE
  6. XYREM [Suspect]
     Active Substance: SODIUM OXYBATE
     Indication: CATAPLEXY
  7. ASPIRIN. [Concomitant]
     Active Substance: ASPIRIN
  8. BENZONATATE. [Concomitant]
     Active Substance: BENZONATATE
  9. CIALIS [Concomitant]
     Active Substance: TADALAFIL
  10. PREDNISONE. [Concomitant]
     Active Substance: PREDNISONE
  11. HYDROXYUREA. [Concomitant]
     Active Substance: HYDROXYUREA
  12. METOPROLOL TARTRATE. [Concomitant]
     Active Substance: METOPROLOL TARTRATE
  13. XYREM [Suspect]
     Active Substance: SODIUM OXYBATE
     Indication: NARCOLEPSY
     Dosage: 4.5 G, BID
     Route: 048
     Dates: start: 200210
  14. ATORVASTATIN [Concomitant]
     Active Substance: ATORVASTATIN

REACTIONS (3)
  - Bronchitis [Unknown]
  - Gout [Recovered/Resolved]
  - Intentional product use issue [Unknown]

NARRATIVE: CASE EVENT DATE: 2015
